FAERS Safety Report 15000625 (Version 2)
Quarter: 2018Q2

REPORT INFORMATION
  Report Type: Spontaneous
  Country: KR (occurrence: KR)
  Receive Date: 20180612
  Receipt Date: 20180619
  Transmission Date: 20180711
  Serious: Yes (Other)
  Sender: FDA-Public Use
  Company Number: KR-PFIZER INC-2018234047

PATIENT
  Age: 44 Year
  Sex: Male

DRUGS (4)
  1. FIMASARTAN [Concomitant]
     Active Substance: FIMASARTAN
     Indication: HYPERTENSION
     Dosage: 60 MG, 1X/DAY
  2. METHYLPREDNISOLONE ACETATE. [Suspect]
     Active Substance: METHYLPREDNISOLONE ACETATE
     Dosage: (SCHEDULED TAPERING)
  3. AMLODIPINE [Concomitant]
     Active Substance: AMLODIPINE BESYLATE
     Indication: HYPERTENSION
     Dosage: 5 MG, UNK
  4. METHYLPREDNISOLONE ACETATE. [Suspect]
     Active Substance: METHYLPREDNISOLONE ACETATE
     Indication: FACIAL PARALYSIS
     Dosage: 60 MG, 1X/DAY (60 MG ONCE DAILY FOR ONE WEEK)

REACTIONS (2)
  - Carotid artery dissection [Recovered/Resolved]
  - Vertebral artery dissection [Recovered/Resolved]
